FAERS Safety Report 10522990 (Version 2)
Quarter: 2014Q4

REPORT INFORMATION
  Report Type: Spontaneous
  Country: US (occurrence: US)
  Receive Date: 20141016
  Receipt Date: 20141016
  Transmission Date: 20150528
  Serious: Yes (Death, Hospitalization, Other)
  Sender: FDA-Public Use
  Company Number: US-GLAXOSMITHKLINE-B0724484A

PATIENT
  Age: 79 Year
  Sex: Male

DRUGS (1)
  1. AVANDIA [Suspect]
     Active Substance: ROSIGLITAZONE MALEATE
     Indication: DIABETES MELLITUS
     Dosage: UNK
     Route: 048
     Dates: start: 200006, end: 20050403

REACTIONS (8)
  - Sepsis [Fatal]
  - Hemiparesis [Unknown]
  - Pneumonia aspiration [Fatal]
  - Transient ischaemic attack [Unknown]
  - Cerebrovascular accident [Unknown]
  - Carotid artery occlusion [Unknown]
  - Ischaemic stroke [Unknown]
  - Cardio-respiratory arrest [Fatal]

NARRATIVE: CASE EVENT DATE: 20050324
